FAERS Safety Report 7036306 (Version 2)
Quarter: 2013Q3

REPORT INFORMATION
  Report Type: Report from Study
  Country: JP (occurrence: JP)
  Receive Date: 20090629
  Receipt Date: 20130712
  Transmission Date: 20140515
  Serious: Yes (Hospitalization)
  Sender: FDA-Public Use
  Company Number: JP-BRISTOL-MYERS SQUIBB COMPANY-14521223

PATIENT
  Age: 51 Year
  Sex: Female
  Weight: 54 kg

DRUGS (10)
  1. ERBITUX SOLN FOR INF 5MG/ML [Suspect]
     Indication: RECTAL CANCER
     Dosage: 350MG FROM 22JAN AND RECENT INFUSION WAS ON 5FEB09.
     Route: 041
     Dates: start: 20090109, end: 20090109
  2. IRINOTECAN [Suspect]
     Indication: RECTAL CANCER
     Dosage: REDUCED TO 170MG FROM 29JAN09.
     Route: 041
     Dates: start: 20090109, end: 20090109
  3. LUVOX [Suspect]
     Indication: DEPRESSION
     Dosage: FORM-TABS?21NOV06-15JAN09: 75MG (786D)?16JAN09-20FEB09: 150MG (35D)?21FEB09-18JUN09: 75MG
     Route: 048
     Dates: start: 20061121, end: 20090115
  4. RESTAMIN [Concomitant]
     Indication: PREMEDICATION
     Route: 048
     Dates: start: 20090109
  5. DECADRON [Concomitant]
     Indication: PREMEDICATION
     Route: 042
     Dates: start: 20090109
  6. GRAN [Concomitant]
     Route: 058
     Dates: start: 20090116, end: 20090120
  7. KYTRIL [Concomitant]
     Indication: ANTIEMETIC SUPPORTIVE CARE
  8. PREDONINE [Concomitant]
     Route: 048
     Dates: start: 20071116, end: 2009
  9. TOFRANIL [Concomitant]
     Indication: DEPRESSION
     Dosage: TABLET
     Route: 048
     Dates: start: 20070109, end: 20090608
  10. LEXOTAN [Concomitant]
     Indication: DEPRESSION
     Dosage: TABLET
     Route: 048
     Dates: start: 20061123, end: 20090618

REACTIONS (2)
  - Febrile neutropenia [Recovered/Resolved]
  - Liver disorder [Recovered/Resolved]
